FAERS Safety Report 4404970-7 (Version None)
Quarter: 2004Q3

REPORT INFORMATION
  Report Type: 
  Country: None (occurrence: None)
  Receive Date: 20040722
  Receipt Date: 20040709
  Transmission Date: 20050211
  Serious: Yes (Other)
  Sender: FDA-Public Use
  Company Number: GB-MERCK-0407GBR00095

PATIENT
  Age: 67 Year
  Sex: Male

DRUGS (6)
  1. COD LIVER OIL [Concomitant]
     Route: 048
  2. CODEINE [Concomitant]
     Route: 048
     Dates: start: 20030101
  3. DECADRON [Suspect]
     Route: 048
     Dates: start: 20040606, end: 20040612
  4. DECADRON [Suspect]
     Route: 048
     Dates: start: 20040623, end: 20040623
  5. OMEPRAZOLE [Concomitant]
     Route: 065
     Dates: start: 20040512, end: 20040623
  6. PANCREATIN [Concomitant]
     Route: 048
     Dates: start: 19970101

REACTIONS (3)
  - FATIGUE [None]
  - HICCUPS [None]
  - MYALGIA [None]
